FAERS Safety Report 8533774-9 (Version None)
Quarter: 2012Q3

REPORT INFORMATION
  Report Type: 
  Country: None (occurrence: None)
  Receive Date: 20120724
  Receipt Date: 20120710
  Transmission Date: 20120928
  Serious: Yes (Death)
  Sender: FDA-Public Use
  Company Number: DE-SANOFI-AVENTIS-2012SA048825

PATIENT
  Age: 81 Year
  Sex: Female
  Weight: 67 kg

DRUGS (5)
  1. SOLOSTAR [Suspect]
     Indication: DEVICE THERAPY
  2. APIDRA SOLOSTAR [Suspect]
     Indication: TYPE 2 DIABETES MELLITUS
     Route: 058
     Dates: start: 20111118
  3. SOLOSTAR [Suspect]
  4. LANTUS SOLOSTAR [Suspect]
     Indication: TYPE 2 DIABETES MELLITUS
     Route: 058
     Dates: start: 20110601
  5. LANTUS SOLOSTAR [Suspect]
     Route: 058
     Dates: start: 20111118

REACTIONS (1)
  - DEATH [None]
